FAERS Safety Report 5740855-1 (Version None)
Quarter: 2008Q2

REPORT INFORMATION
  Report Type: 
  Country: None (occurrence: None)
  Receive Date: 20080515
  Receipt Date: 20080403
  Transmission Date: 20081010
  Serious: No
  Sender: FDA-Public Use
  Company Number: WAES 0804USA03241

PATIENT
  Sex: Female

DRUGS (8)
  1. ISENTRESS [Suspect]
     Indication: HIV INFECTION
     Dosage: PO
     Route: 048
  2. EPZICOM [Concomitant]
  3. INTELENCE [Concomitant]
  4. KALETRA [Concomitant]
  5. LIPITOR [Concomitant]
  6. WELLBUTRIN [Concomitant]
  7. ZOLOFT [Concomitant]
  8. LORAZEPAM [Concomitant]

REACTIONS (1)
  - FLATULENCE [None]
